FAERS Safety Report 4919106-3 (Version None)
Quarter: 2006Q1

REPORT INFORMATION
  Report Type: 
  Country: None (occurrence: None)
  Receive Date: 20060222
  Receipt Date: 20051212
  Transmission Date: 20060701
  Serious: Yes (Other)
  Sender: FDA-Public Use
  Company Number: PHBS2005BR18511

PATIENT
  Age: 27 Year
  Sex: Female
  Weight: 61 kg

DRUGS (3)
  1. VOLTAREN [Suspect]
     Indication: RENAL COLIC
     Dosage: 75 MG, Q12H
     Dates: start: 20051210, end: 20051212
  2. BUSCOPAN [Concomitant]
     Indication: RENAL COLIC
     Dosage: UNK, Q4H
     Route: 048
  3. LEVONORGESTREL AND ETHINYL ESTRADIOL [Concomitant]
     Indication: CONTRACEPTION
     Dosage: UNK, QD
     Route: 048

REACTIONS (4)
  - CHILLS [None]
  - NAUSEA [None]
  - PYELOPLASTY [None]
  - TREMOR [None]
